FAERS Safety Report 6635650-5 (Version None)
Quarter: 2010Q1

REPORT INFORMATION
  Report Type: 
  Country: None (occurrence: None)
  Receive Date: 20100312
  Receipt Date: 20100312
  Transmission Date: 20100710
  Serious: Yes (Hospitalization)
  Sender: FDA-Public Use
  Company Number: None

PATIENT
  Age: 77 Year
  Sex: Male

DRUGS (1)
  1. PLAVIX [Suspect]
     Dosage: 75 MG DAILY PO
     Route: 048

REACTIONS (1)
  - CEREBRAL HAEMORRHAGE [None]
